FAERS Safety Report 12430751 (Version 2)
Quarter: 2018Q2

REPORT INFORMATION
  Report Type: Spontaneous
  Country: US (occurrence: US)
  Receive Date: 20160602
  Receipt Date: 20180426
  Transmission Date: 20180711
  Serious: Yes (Other)
  Sender: FDA-Public Use
  Company Number: US-PURDUE-USA-2016-0129924

PATIENT
  Sex: Female
  Weight: 53.61 kg

DRUGS (6)
  1. ZANAFLEX [Concomitant]
     Active Substance: TIZANIDINE HYDROCHLORIDE
     Indication: PRODUCT USED FOR UNKNOWN INDICATION
     Route: 048
  2. MORPHINE SULFATE (SIMILAR TO NDA 19-516) [Suspect]
     Active Substance: MORPHINE SULFATE
     Indication: INJURY
     Dosage: 30 MG, BID
     Route: 048
     Dates: end: 20160606
  3. OXYCODONE HYDROCHLORIDE (SIMILAR TO NDA 22-272) [Concomitant]
     Active Substance: OXYCODONE HYDROCHLORIDE
     Indication: PRODUCT USED FOR UNKNOWN INDICATION
     Route: 048
  4. XANAX [Concomitant]
     Active Substance: ALPRAZOLAM
     Indication: PRODUCT USED FOR UNKNOWN INDICATION
     Route: 048
  5. MORPHINE SULFATE (SIMILAR TO NDA 19-516) [Suspect]
     Active Substance: MORPHINE SULFATE
     Indication: SPINAL FUSION SURGERY
     Dosage: (5X30 MG TABLETS)150 MG, UNK
     Route: 048
     Dates: start: 2013
  6. MORPHINE SULFATE (SIMILAR TO NDA 19-516) [Suspect]
     Active Substance: MORPHINE SULFATE
     Indication: SPINAL CORD DISORDER
     Dosage: 30 MG, BID
     Route: 048
     Dates: end: 2009

REACTIONS (13)
  - Bone disorder [Unknown]
  - Loss of personal independence in daily activities [Unknown]
  - Body temperature decreased [Unknown]
  - Dysuria [Unknown]
  - Off label use [Unknown]
  - Drug dependence [Unknown]
  - Blood calcium increased [Unknown]
  - Weight decreased [Unknown]
  - Constipation [Unknown]
  - Spinal fracture [Unknown]
  - Unevaluable event [Unknown]
  - Feeling hot [Unknown]
  - Pain [Unknown]

NARRATIVE: CASE EVENT DATE: 2013
